FAERS Safety Report 19881541 (Version 1)
Quarter: 2021Q3

REPORT INFORMATION
  Report Type: Spontaneous
  Country: US (occurrence: US)
  Receive Date: 20210925
  Receipt Date: 20210925
  Transmission Date: 20211014
  Serious: No
  Sender: FDA-Public Use
  Company Number: US-SA-2021SA311800

PATIENT
  Age: 62 Year
  Sex: Female

DRUGS (7)
  1. CELECOXIB. [Concomitant]
     Active Substance: CELECOXIB
  2. METHOCARBAMOL. [Concomitant]
     Active Substance: METHOCARBAMOL
  3. MONTELUKAST [Concomitant]
     Active Substance: MONTELUKAST SODIUM
  4. LIDOCAINE. [Concomitant]
     Active Substance: LIDOCAINE
  5. DUPIXENT [Suspect]
     Active Substance: DUPILUMAB
     Indication: DERMATITIS ATOPIC
     Dosage: 300 MG, QOW
     Route: 058
     Dates: start: 20181116
  6. TELMISARTAN. [Concomitant]
     Active Substance: TELMISARTAN
  7. TRAMADOL HCL [Concomitant]
     Active Substance: TRAMADOL HYDROCHLORIDE

REACTIONS (1)
  - Dermatitis atopic [Recovered/Resolved]

NARRATIVE: CASE EVENT DATE: 20210916
